FAERS Safety Report 9635569 (Version 2)
Quarter: 2024Q2

REPORT INFORMATION
  Report Type: Spontaneous
  Country: US (occurrence: US)
  Receive Date: 20131021
  Receipt Date: 20240410
  Transmission Date: 20240715
  Serious: No
  Sender: FDA-Public Use
  Company Number: US-PURDUE-USA-2013-0103494

PATIENT
  Age: 48 Year
  Sex: Female
  Weight: 141 kg

DRUGS (3)
  1. BUTRANS [Suspect]
     Active Substance: BUPRENORPHINE
     Indication: Pain management
     Dosage: 20 MCG/HR, UNK
     Route: 062
  2. BUTRANS [Suspect]
     Active Substance: BUPRENORPHINE
     Dosage: 20 MCG/HR, WEEKLY
     Route: 062
  3. BUPRENORPHINE [Suspect]
     Active Substance: BUPRENORPHINE
     Indication: Pain management
     Dosage: UNK
     Route: 065

REACTIONS (13)
  - Pelvic pain [Not Recovered/Not Resolved]
  - Pain [Not Recovered/Not Resolved]
  - Pain in extremity [Not Recovered/Not Resolved]
  - Back pain [Not Recovered/Not Resolved]
  - Arthralgia [Not Recovered/Not Resolved]
  - Dermatitis allergic [Not Recovered/Not Resolved]
  - Hot flush [Not Recovered/Not Resolved]
  - Application site pruritus [Unknown]
  - Drug withdrawal syndrome [Not Recovered/Not Resolved]
  - Drug ineffective [Not Recovered/Not Resolved]
  - Flushing [Not Recovered/Not Resolved]
  - Product adhesion issue [Not Recovered/Not Resolved]
  - Dermatitis contact [Not Recovered/Not Resolved]

NARRATIVE: CASE EVENT DATE: 20130601
